FAERS Safety Report 10230247 (Version 3)
Quarter: 2014Q3

REPORT INFORMATION
  Report Type: Spontaneous
  Country: US (occurrence: US)
  Receive Date: 20140611
  Receipt Date: 20140815
  Transmission Date: 20150326
  Serious: Yes (Death, Hospitalization, Other)
  Sender: FDA-Public Use
  Company Number: US-BAXTER-2014BAX028852

PATIENT
  Sex: Male

DRUGS (2)
  1. DIANEAL LOW CALCIUM PERITONEAL DIALYSIS SOLUTION WITH DEXTROSE [Suspect]
     Active Substance: CALCIUM CHLORIDE\DEXTROSE\MAGNESIUM CHLORIDE\SODIUM CHLORIDE\SODIUM LACTATE
     Indication: PERITONEAL DIALYSIS
     Route: 033
     Dates: start: 2012
  2. DIANEAL LOW CALCIUM PERITONEAL DIALYSIS SOLUTION WITH DEXTROSE [Suspect]
     Active Substance: CALCIUM CHLORIDE\DEXTROSE\MAGNESIUM CHLORIDE\SODIUM CHLORIDE\SODIUM LACTATE
     Indication: PERITONEAL DIALYSIS
     Route: 033
     Dates: start: 2012

REACTIONS (17)
  - Renal failure chronic [Fatal]
  - Haemorrhage [Not Recovered/Not Resolved]
  - Pneumonia [Fatal]
  - Coronary artery bypass [Fatal]
  - Clostridium difficile infection [Unknown]
  - Dyspepsia [Not Recovered/Not Resolved]
  - Terminal state [Unknown]
  - Peritoneal dialysis complication [Unknown]
  - Coronary artery disease [Fatal]
  - Device related sepsis [Unknown]
  - Pneumothorax [Unknown]
  - Hypophagia [Unknown]
  - Myocardial infarction [Not Recovered/Not Resolved]
  - Peritonitis bacterial [Not Recovered/Not Resolved]
  - Food intolerance [Unknown]
  - Clostridium difficile sepsis [Fatal]
  - Gastrointestinal infection [Unknown]

NARRATIVE: CASE EVENT DATE: 20140520
